FAERS Safety Report 7688592-0 (Version None)
Quarter: 2011Q3

REPORT INFORMATION
  Report Type: 
  Country: None (occurrence: None)
  Receive Date: 20110817
  Receipt Date: 20110811
  Transmission Date: 20111222
  Serious: Yes (Death, Hospitalization, Other)
  Sender: FDA-Public Use
  Company Number: JP-BAYER-201010657BYL

PATIENT
  Age: 74 Year
  Sex: Male
  Weight: 82.3 kg

DRUGS (22)
  1. GASTROM [Concomitant]
     Dosage: SINCE BEFORE ADMINISTRATION
     Route: 048
     Dates: end: 20100113
  2. TS 1 [Concomitant]
     Indication: CHEMOTHERAPY MULTIPLE AGENTS SYSTEMIC
     Dosage: DAILY DOSE 300 MG
     Route: 048
     Dates: start: 20100426, end: 20100426
  3. NEXAVAR [Suspect]
     Dosage: 400 MG (DAILY DOSE), , ORAL
     Route: 048
     Dates: start: 20090915, end: 20091217
  4. ASPIRIN [Concomitant]
     Dosage: SINCE BEFORE ADMINISTRATION
     Route: 048
  5. INTERFERON ALFA [Concomitant]
     Indication: CHEMOTHERAPY MULTIPLE AGENTS SYSTEMIC
     Dosage: 500 MIU, TIW
     Route: 058
     Dates: start: 20100310, end: 20100406
  6. ETOPOSIDE [Concomitant]
     Indication: CHEMOTHERAPY MULTIPLE AGENTS SYSTEMIC
     Dosage: DAILY DOSE 100 MG
     Route: 048
     Dates: start: 20100429, end: 20100802
  7. NEXAVAR [Suspect]
     Indication: HEPATIC NEOPLASM MALIGNANT
     Dosage: 800 MG (DAILY DOSE), , ORAL
     Route: 048
     Dates: start: 20090821, end: 20090902
  8. NEXAVAR [Suspect]
     Dosage: DAILY DOSE 400 MG
     Route: 048
     Dates: start: 20100310, end: 20101127
  9. DEPAS [Concomitant]
     Dosage: SINCE BEFORE ADMINISTRATION
     Route: 048
  10. LENDORMIN [Concomitant]
     Dosage: SINCE BEFORE ADMINISTRATION
     Route: 048
  11. AMLODIPINE [Concomitant]
     Dosage: SINCE BEFORE ADMINISTRATION
     Route: 048
  12. UREPEARL [Concomitant]
  13. FAMOTIDINE [Concomitant]
     Dosage: SINCE BEFORE ADMINISTRATION
     Route: 048
     Dates: end: 20100113
  14. LANSOPRAZOLE [Concomitant]
     Dosage: DAILY DOSE 15 MG
     Route: 048
     Dates: start: 20100114
  15. TS 1 [Concomitant]
     Dosage: DAILY DOSE 50 MG
     Route: 048
     Dates: start: 20101015, end: 20101028
  16. UREPEARL [Concomitant]
     Indication: PROPHYLAXIS
     Route: 061
     Dates: start: 20090820
  17. TS 1 [Concomitant]
     Dosage: DAILY DOSE 80 MG
     Route: 048
     Dates: start: 20101029, end: 20101111
  18. ETOPOSIDE [Concomitant]
     Dosage: DAILY DOSE 100 MG
     Route: 048
     Dates: start: 20100831, end: 20100904
  19. NEXAVAR [Suspect]
     Dosage: 400 MG (DAILY DOSE), , ORAL
     Route: 048
     Dates: start: 20090902, end: 20090910
  20. NEXAVAR [Suspect]
     Dosage: DAILY DOSE 800 MG
     Route: 048
     Dates: start: 20091217, end: 20100310
  21. TENORMIN [Concomitant]
     Dosage: SINCE BEFORE ADMINISTRATION
     Route: 048
  22. FLUOROURACIL [Concomitant]
     Indication: CHEMOTHERAPY MULTIPLE AGENTS SYSTEMIC
     Dosage: 250 MG, 5IW
     Route: 042
     Dates: start: 20100310, end: 20100406

REACTIONS (11)
  - RASH [None]
  - JAUNDICE [None]
  - DYSPHONIA [None]
  - HYPOPHOSPHATAEMIA [None]
  - DECREASED APPETITE [None]
  - HEPATIC ENCEPHALOPATHY [None]
  - LIPASE INCREASED [None]
  - ALOPECIA [None]
  - HEPATIC NEOPLASM MALIGNANT [None]
  - PALMAR-PLANTAR ERYTHRODYSAESTHESIA SYNDROME [None]
  - DIARRHOEA [None]
